FAERS Safety Report 4911994-X (Version None)
Quarter: 2006Q1

REPORT INFORMATION
  Report Type: 
  Country: None (occurrence: None)
  Receive Date: 20060213
  Receipt Date: 20060203
  Transmission Date: 20060701
  Serious: Yes (Hospitalization)
  Sender: FDA-Public Use
  Company Number: 2006006099

PATIENT
  Age: 72 Year
  Sex: Male
  Weight: 63.5036 kg

DRUGS (7)
  1. CABERGOLINE [Suspect]
     Indication: PARKINSON'S DISEASE
     Dosage: (2 MG), ORAL
     Route: 048
     Dates: end: 20050101
  2. COMTAN [Concomitant]
  3. ZESTRIL [Concomitant]
  4. MICARDIS HCT [Concomitant]
  5. SINEMET [Concomitant]
  6. ARTANE (TRIHEXYHENIDYL HYDROCHLORIDE) [Concomitant]
  7. ALL OTHER THERAPEUTIC PRODUCTS (ALL OTHER THERAPEUTIC PRODUCTS) [Concomitant]

REACTIONS (12)
  - CERVICAL VERTEBRAL FRACTURE [None]
  - CONDITION AGGRAVATED [None]
  - DELUSION [None]
  - FALL [None]
  - GENERAL PHYSICAL HEALTH DETERIORATION [None]
  - HYPOXIC ENCEPHALOPATHY [None]
  - PARANOIA [None]
  - PARKINSON'S DISEASE [None]
  - PHYSICAL ASSAULT [None]
  - PSYCHOTIC DISORDER [None]
  - RAPID EYE MOVEMENTS SLEEP ABNORMAL [None]
  - RESPIRATORY ARREST [None]
